FAERS Safety Report 17211118 (Version 1)
Quarter: 2019Q4

REPORT INFORMATION
  Report Type: Spontaneous
  Country: CN (occurrence: CN)
  Receive Date: 20191228
  Receipt Date: 20191228
  Transmission Date: 20200122
  Serious: Yes (Other)
  Sender: FDA-Public Use
  Company Number: CN-DRREDDYS-GPV/CHN/19/0117540

PATIENT
  Age: 19 Year
  Sex: Male
  Weight: 55 kg

DRUGS (1)
  1. OLANZAPINE. [Suspect]
     Active Substance: OLANZAPINE
     Indication: BIPOLAR DISORDER
     Route: 048
     Dates: start: 20190527

REACTIONS (1)
  - Oculogyric crisis [Recovering/Resolving]

NARRATIVE: CASE EVENT DATE: 20190527
